FAERS Safety Report 16115038 (Version 4)
Quarter: 2019Q2

REPORT INFORMATION
  Report Type: Spontaneous
  Country: US (occurrence: US)
  Receive Date: 20190325
  Receipt Date: 20190612
  Transmission Date: 20190711
  Serious: Yes (Other)
  Sender: FDA-Public Use
  Company Number: US-SHIRE-US201909696

PATIENT
  Age: 74 Year
  Sex: Female

DRUGS (1)
  1. GATTEX [Suspect]
     Active Substance: TEDUGLUTIDE\WATER
     Indication: PRODUCT USED FOR UNKNOWN INDICATION
     Dosage: 0.2000 (UNITS UNKNOWN), 1X/DAY:QD
     Route: 058
     Dates: start: 20151109

REACTIONS (4)
  - Radiation injury [Unknown]
  - Diarrhoea [Unknown]
  - Underweight [Unknown]
  - Blood urine present [Not Recovered/Not Resolved]

NARRATIVE: CASE EVENT DATE: 20190318
